FAERS Safety Report 9901745 (Version 2)
Quarter: 2014Q3

REPORT INFORMATION
  Report Type: Spontaneous
  Country: US (occurrence: US)
  Receive Date: 20140217
  Receipt Date: 20140818
  Transmission Date: 20150326
  Serious: Yes (Death, Hospitalization, Other)
  Sender: FDA-Public Use
  Company Number: US-009507513-1402USA007366

PATIENT
  Sex: Female

DRUGS (1)
  1. NUVARING [Suspect]
     Active Substance: ETHINYL ESTRADIOL\ETONOGESTREL
     Indication: CONTRACEPTION
     Dosage: 0.12 MG-0.015 MG/24 HR, 1 RING IN X3 WKS, OUT X1 WK
     Route: 067
     Dates: start: 20120515, end: 20120726

REACTIONS (11)
  - Polycystic ovaries [Unknown]
  - Nausea [Unknown]
  - Endometriosis [Unknown]
  - Vomiting [Unknown]
  - Psychogenic seizure [Unknown]
  - Gastrooesophageal reflux disease [Unknown]
  - Fatigue [Unknown]
  - Pulmonary embolism [Fatal]
  - Deep vein thrombosis [Unknown]
  - Fibromyalgia [Unknown]
  - Atrial fibrillation [Unknown]

NARRATIVE: CASE EVENT DATE: 201207
